FAERS Safety Report 8609629-8 (Version None)
Quarter: 2012Q3

REPORT INFORMATION
  Report Type: 
  Country: None (occurrence: None)
  Receive Date: 20120821
  Receipt Date: 20120815
  Transmission Date: 20120928
  Serious: Yes (Hospitalization)
  Sender: FDA-Public Use
  Company Number: US-GILEAD-2012-0059522

PATIENT
  Sex: Female

DRUGS (2)
  1. LETAIRIS [Suspect]
     Indication: PULMONARY HYPERTENSION
     Dosage: 5 MG, UNK
     Route: 048
     Dates: start: 20120628
  2. LETAIRIS [Suspect]
     Indication: SARCOIDOSIS

REACTIONS (4)
  - PULMONARY EMBOLISM [None]
  - RIGHT VENTRICULAR FAILURE [None]
  - DYSPNOEA [None]
  - OEDEMA [None]
